FAERS Safety Report 5868064-6 (Version None)
Quarter: 2008Q3

REPORT INFORMATION
  Report Type: 
  Country: None (occurrence: None)
  Receive Date: 20080902
  Receipt Date: 20080516
  Transmission Date: 20090109
  Serious: No
  Sender: FDA-Public Use
  Company Number: US-ABBOTT-08P-163-0443957-00

PATIENT
  Sex: Female
  Weight: 57.204 kg

DRUGS (11)
  1. DEPAKOTE ER [Suspect]
     Indication: MIGRAINE
     Route: 048
     Dates: start: 20071001, end: 20080301
  2. DEPAKOTE ER [Suspect]
     Route: 048
     Dates: start: 20080301
  3. LEVOTHYROXINE SODIUM [Concomitant]
     Indication: HYPOTHYROIDISM
     Route: 048
  4. TOPAMAX [Concomitant]
     Indication: MIGRAINE
     Route: 048
  5. GABAPENTIN [Concomitant]
     Indication: SCIATICA
     Route: 048
  6. OMEPRAZOLE [Concomitant]
     Indication: GASTROOESOPHAGEAL REFLUX DISEASE
     Route: 048
  7. VIVELLE-DOT [Concomitant]
     Indication: HORMONE REPLACEMENT THERAPY
     Route: 048
  8. IBANDRONATE SODIUM [Concomitant]
     Indication: OSTEOPENIA
     Route: 048
  9. IMITREX [Concomitant]
     Indication: MIGRAINE
  10. IMITREX [Concomitant]
     Dosage: IMMITREX INJECTIONS
     Route: 050
  11. BOTULINUM TOXIN TYPE A [Concomitant]
     Indication: MIGRAINE
     Route: 050

REACTIONS (2)
  - ALOPECIA [None]
  - MUSCULOSKELETAL PAIN [None]
